FAERS Safety Report 23561885 (Version 1)
Quarter: 2024Q1

REPORT INFORMATION
  Report Type: Spontaneous
  Country: US (occurrence: US)
  Receive Date: 20240225
  Receipt Date: 20240225
  Transmission Date: 20240409
  Serious: No
  Sender: FDA-Public Use
  Company Number: US-BAUSCHBL-2024BNL001935

PATIENT
  Age: 86 Year
  Sex: Female

DRUGS (2)
  1. XIIDRA [Suspect]
     Active Substance: LIFITEGRAST
     Indication: Blepharitis
     Route: 065
  2. XIIDRA [Suspect]
     Active Substance: LIFITEGRAST
     Indication: Dry eye

REACTIONS (1)
  - Discomfort [Unknown]
